FAERS Safety Report 15219495 (Version 2)
Quarter: 2018Q3

REPORT INFORMATION
  Report Type: Spontaneous
  Country: US (occurrence: US)
  Receive Date: 20180731
  Receipt Date: 20180928
  Transmission Date: 20181010
  Serious: Yes (Death, Hospitalization, Other)
  Sender: FDA-Public Use
  Company Number: US-B.I. PHARMACEUTICALS,INC./RIDGEFIELD-2018-BI-038611

PATIENT
  Age: 69 Year
  Sex: Male
  Weight: 83.01 kg

DRUGS (6)
  1. CARBIDOPA LEVODOPA [Concomitant]
     Active Substance: CARBIDOPA\LEVODOPA
     Indication: PARKINSON^S DISEASE
     Dosage: FORM OF ADMIN.: IR; UNIT DOSE/ DAILY DOSE: 25/100
     Route: 065
     Dates: start: 2016, end: 2018
  2. AZILECT [Concomitant]
     Active Substance: RASAGILINE MESYLATE
     Indication: PARKINSON^S DISEASE
     Dosage: FORM OF ADMIN.: IR; UNIT DOSE/ DAILY DOSE: 1
     Route: 065
     Dates: start: 2009, end: 2016
  3. DILTIAZEM. [Concomitant]
     Active Substance: DILTIAZEM
     Indication: ATRIAL FIBRILLATION
     Dosage: FORM OF ADMIN.: IR
     Route: 065
  4. MIRAPEX ER [Suspect]
     Active Substance: PRAMIPEXOLE DIHYDROCHLORIDE
     Indication: PARKINSON^S DISEASE
     Dosage: QD; FORM STRENGTH: 4.5 MG; FORMULATION: TABLET; FORM OF ADMIN.: EXTENDED RELEASE (ER)
     Route: 048
     Dates: start: 2009, end: 2018
  5. OMEPRAZOLE. [Concomitant]
     Active Substance: OMEPRAZOLE
     Indication: MEGACOLON
     Dosage: FORM OF ADMIN.: IR; UNIT DOSE AND DAILY DOSE: 40
     Route: 065
     Dates: start: 2014, end: 2018
  6. OMEPRAZOLE. [Concomitant]
     Active Substance: OMEPRAZOLE
     Indication: GASTROOESOPHAGEAL REFLUX DISEASE

REACTIONS (12)
  - Fall [Recovered/Resolved]
  - Respiratory tract infection [Unknown]
  - Arthropod bite [Recovered/Resolved with Sequelae]
  - Aphasia [Unknown]
  - Parkinson^s disease [Unknown]
  - Delusion [Unknown]
  - Urinary tract infection [Unknown]
  - Unevaluable event [Unknown]
  - Hallucination [Unknown]
  - Memory impairment [Unknown]
  - Sepsis [Fatal]
  - Knee arthroplasty [Recovered/Resolved with Sequelae]

NARRATIVE: CASE EVENT DATE: 2018
